FAERS Safety Report 21131334 (Version 2)
Quarter: 2023Q4

REPORT INFORMATION
  Report Type: Report from Study
  Country: US (occurrence: US)
  Receive Date: 20220726
  Receipt Date: 20231129
  Transmission Date: 20240110
  Serious: Yes (Other)
  Sender: FDA-Public Use
  Company Number: US-MYLANLABS-2022M1020740

PATIENT
  Sex: Female

DRUGS (6)
  1. PHENYTEK [Suspect]
     Active Substance: PHENYTOIN SODIUM
     Indication: Epilepsy
     Dosage: UNK
     Route: 065
  2. PHENYTEK [Suspect]
     Active Substance: PHENYTOIN SODIUM
     Dosage: 100 MILLIGRAM
     Route: 065
  3. PHENYTEK [Suspect]
     Active Substance: PHENYTOIN SODIUM
     Dosage: 29 MILLIGRAM
     Route: 065
  4. DILANTIN [Suspect]
     Active Substance: PHENYTOIN
     Indication: Product used for unknown indication
     Dosage: UNK
     Route: 065
  5. DILANTIN [Suspect]
     Active Substance: PHENYTOIN
     Indication: Seizure
     Dosage: 100 MILLIGRAM, QD
     Route: 065
  6. DILANTIN [Suspect]
     Active Substance: PHENYTOIN
     Dosage: 30 MILLIGRAM, QD
     Route: 065

REACTIONS (3)
  - Seizure [Unknown]
  - Drug intolerance [Unknown]
  - Drug ineffective [Unknown]
